FAERS Safety Report 7435493-9 (Version None)
Quarter: 2011Q2

REPORT INFORMATION
  Report Type: 
  Country: None (occurrence: None)
  Receive Date: 20110418
  Receipt Date: 20110404
  Transmission Date: 20111010
  Serious: Yes (Other)
  Sender: FDA-Public Use
  Company Number: 030667

PATIENT
  Age: 21 Year
  Sex: Female

DRUGS (3)
  1. EPILIM CHRONO [Concomitant]
  2. KEPPRA [Suspect]
     Indication: EPILEPSY
     Dosage: 500 MG BID ORAL, BEYOND 500 MG TWICE A DAY ORAL
     Route: 048
     Dates: end: 20110101
  3. KEPPRA [Suspect]
     Indication: EPILEPSY
     Dosage: 500 MG BID ORAL, BEYOND 500 MG TWICE A DAY ORAL
     Route: 048
     Dates: start: 20090901

REACTIONS (4)
  - AFFECT LABILITY [None]
  - DEPRESSION [None]
  - SELF-INJURIOUS IDEATION [None]
  - OBSESSIVE THOUGHTS [None]
